FAERS Safety Report 7115887-1 (Version None)
Quarter: 2010Q4

REPORT INFORMATION
  Report Type: 
  Country: None (occurrence: None)
  Receive Date: 20101122
  Receipt Date: 20101111
  Transmission Date: 20110411
  Serious: Yes (Hospitalization)
  Sender: FDA-Public Use
  Company Number: US-ASTRAZENECA-2010SE53734

PATIENT
  Age: 31991 Day
  Sex: Female

DRUGS (8)
  1. TENORMIN [Suspect]
  2. LISINOPRIL [Suspect]
  3. ASPIRIN [Suspect]
  4. RANIBIZUMAB [Suspect]
     Indication: MACULAR DEGENERATION
     Dosage: 0.05
     Route: 031
     Dates: start: 20091020, end: 20100810
  5. CARDIZEM [Suspect]
  6. ZETIA [Suspect]
  7. GLUCOPHAGE [Suspect]
  8. NEVANAC [Suspect]

REACTIONS (3)
  - ACCIDENTAL OVERDOSE [None]
  - DIZZINESS [None]
  - MACULAR DEGENERATION [None]
